FAERS Safety Report 5373187-4 (Version None)
Quarter: 2007Q2

REPORT INFORMATION
  Report Type: 
  Country: None (occurrence: None)
  Receive Date: 20070626
  Receipt Date: 20070611
  Transmission Date: 20071010
  Serious: Yes (Other)
  Sender: FDA-Public Use
  Company Number: S07-USA-02521-01

PATIENT
  Sex: Male

DRUGS (2)
  1. LEXAPRO [Suspect]
  2. WELBUTRIN (BUPROPION HYDROCHLORIDE) [Concomitant]

REACTIONS (1)
  - PARKINSON'S DISEASE [None]
